FAERS Safety Report 5031006-X (Version None)
Quarter: 2006Q2

REPORT INFORMATION
  Report Type: 
  Country: None (occurrence: None)
  Receive Date: 20060621
  Receipt Date: 20060414
  Transmission Date: 20061013
  Serious: No
  Sender: FDA-Public Use
  Company Number: US-GLAXOSMITHKLINE-A0601824A

PATIENT
  Age: 54 Year
  Sex: Female

DRUGS (9)
  1. FLOVENT [Suspect]
     Indication: WHEEZING
     Dosage: 4PUFF TWICE PER DAY
     Route: 055
     Dates: start: 20060413
  2. LEVOXYL [Concomitant]
  3. MULTI-VITAMIN [Concomitant]
  4. ALBUTEROL [Concomitant]
  5. ASCORBIC ACID [Concomitant]
  6. VITAMIN B COMPLEX CAP [Concomitant]
  7. CO Q10 [Concomitant]
  8. WOBENZYM [Concomitant]
  9. CORAL CALCIUM [Concomitant]

REACTIONS (2)
  - EXCITABILITY [None]
  - NAUSEA [None]
